FAERS Safety Report 9702713 (Version 2)
Quarter: 2014Q1

REPORT INFORMATION
  Report Type: Spontaneous
  Country: US (occurrence: US)
  Receive Date: 20131121
  Receipt Date: 20140212
  Transmission Date: 20141002
  Serious: Yes (Hospitalization)
  Sender: FDA-Public Use
  Company Number: US-B.I. PHARMACEUTICALS,INC./RIDGEFIELD-2013-BI-37603BP

PATIENT
  Age: 61 Year
  Sex: Male
  Weight: 172 kg

DRUGS (5)
  1. MICARDIS [Suspect]
     Indication: BLOOD PRESSURE
     Dosage: 80 MG
     Route: 048
     Dates: start: 200106
  2. MICARDIS [Suspect]
     Dosage: 20 MG
     Route: 048
     Dates: start: 2010
  3. TELMESARTAN [Concomitant]
     Indication: HYPERTENSION
     Dates: start: 201311
  4. FURADANTIN [Concomitant]
     Indication: CYSTITIS NONINFECTIVE
     Dates: start: 201309
  5. ZAROXOLYN [Concomitant]

REACTIONS (2)
  - Aortic calcification [Recovered/Resolved]
  - Hypotension [Recovered/Resolved]
